FAERS Safety Report 7680731 (Version 3)
Quarter: 2013Q1

REPORT INFORMATION
  Report Type: Report from Study
  Country: US (occurrence: US)
  Receive Date: 20101123
  Receipt Date: 20130111
  Transmission Date: 20140127
  Serious: Yes (Hospitalization)
  Sender: FDA-Public Use
  Company Number: US-ACTELION-A-US2010-38786

PATIENT
  Age: 65 Year
  Sex: Male

DRUGS (16)
  1. TRACLEER [Suspect]
     Indication: PULMONARY ARTERIAL HYPERTENSION
     Dosage: 125 MG, BID
     Route: 048
  2. TRACLEER [Suspect]
     Dosage: 62.5 MG, BID
     Route: 048
  3. REVATIO [Concomitant]
  4. METOPROLOL [Concomitant]
  5. LISINOPRIL [Concomitant]
  6. SINEMET [Concomitant]
  7. COMTAN [Concomitant]
  8. LASIX [Concomitant]
  9. FOLIC ACID [Concomitant]
  10. VITAMINS [Concomitant]
  11. ZOLOFT [Concomitant]
  12. SIMVASTATIN [Concomitant]
  13. LUNESTA [Concomitant]
  14. ASPIRIN [Concomitant]
  15. POTASSIUM CHLORIDE [Concomitant]
  16. CALCIUM CHANNEL BLOCKERS [Concomitant]

REACTIONS (9)
  - Mental status changes [Unknown]
  - Endotracheal intubation [Unknown]
  - Bronchial secretion retention [Recovered/Resolved]
  - Respiratory failure [Unknown]
  - Pneumonia aspiration [Recovered/Resolved]
  - PCO2 increased [Unknown]
  - Heart rate increased [Unknown]
  - Pneumonia [Recovering/Resolving]
  - Fall [Unknown]
